FAERS Safety Report 24133078 (Version 1)
Quarter: 2024Q3

REPORT INFORMATION
  Report Type: Report from Study
  Country: US (occurrence: US)
  Receive Date: 20240724
  Receipt Date: 20240724
  Transmission Date: 20241017
  Serious: No
  Sender: AGIOS PHARMACEUTICALS
  Company Number: US-AGIOS-2407US03839

PATIENT

DRUGS (1)
  1. MITAPIVAT [Suspect]
     Active Substance: MITAPIVAT
     Indication: Pyruvate kinase deficiency anaemia
     Route: 065

REACTIONS (14)
  - Blood iron increased [Unknown]
  - Infection susceptibility increased [Unknown]
  - Fatigue [Unknown]
  - Asthenia [Unknown]
  - Dyspnoea [Unknown]
  - Dizziness [Unknown]
  - Headache [Unknown]
  - Pallor [Unknown]
  - Jaundice [Unknown]
  - Sleep disorder [Unknown]
  - Increased need for sleep [Unknown]
  - Exercise tolerance decreased [Unknown]
  - Disturbance in attention [Unknown]
  - Impaired work ability [Unknown]
